FAERS Safety Report 17288194 (Version 1)
Quarter: 2020Q1

REPORT INFORMATION
  Report Type: Report from Study
  Country: US (occurrence: US)
  Receive Date: 20200120
  Receipt Date: 20200120
  Transmission Date: 20200409
  Serious: Yes (Hospitalization, Other)
  Sender: FDA-Public Use
  Company Number: US-BIOVITRUM-2019US4356

PATIENT
  Age: 6 Year
  Sex: Male
  Weight: 22.7 kg

DRUGS (4)
  1. KINERET [Suspect]
     Active Substance: ANAKINRA
     Route: 058
     Dates: start: 20191113
  2. KINERET [Suspect]
     Active Substance: ANAKINRA
     Route: 058
     Dates: start: 20191113
  3. KINERET [Suspect]
     Active Substance: ANAKINRA
     Indication: PYREXIA
     Route: 058
     Dates: start: 20191113
  4. KINERET [Suspect]
     Active Substance: ANAKINRA
     Route: 058
     Dates: start: 20191112

REACTIONS (21)
  - Pneumonia respiratory syncytial viral [Unknown]
  - Malaise [Unknown]
  - Keloid scar [Unknown]
  - Skin wound [Unknown]
  - Ocular hyperaemia [Unknown]
  - Off label use [Unknown]
  - Postictal state [Unknown]
  - Cough [Unknown]
  - Ear infection [Unknown]
  - Erythema [Unknown]
  - Pruritus [Unknown]
  - Injection site reaction [Unknown]
  - Pyrexia [Recovered/Resolved]
  - Atonic seizures [Unknown]
  - Abdominal discomfort [Unknown]
  - Oropharyngeal pain [Unknown]
  - Product dose omission [Unknown]
  - Seizure [Recovering/Resolving]
  - Pyrexia [Unknown]
  - Injection site erythema [Unknown]
  - Injection site swelling [Unknown]

NARRATIVE: CASE EVENT DATE: 20191213
